FAERS Safety Report 8518119-2 (Version None)
Quarter: 2012Q2

REPORT INFORMATION
  Report Type: 
  Country: None (occurrence: None)
  Receive Date: 20120406
  Receipt Date: 20090409
  Transmission Date: 20120825
  Serious: Yes (Other)
  Sender: FDA-Public Use
  Company Number: PHEH2009US03581

PATIENT
  Sex: Male

DRUGS (4)
  1. TASIGNA [Suspect]
     Indication: GASTROINTESTINAL STROMAL TUMOUR
  2. LEVEMIR [Concomitant]
  3. LISINOPRIL [Concomitant]
  4. NOVOLOG [Concomitant]

REACTIONS (2)
  - HYPERGLYCAEMIA [None]
  - HYPOTENSION [None]
